FAERS Safety Report 4894118-7 (Version None)
Quarter: 2005Q4

REPORT INFORMATION
  Report Type: 
  Country: None (occurrence: None)
  Receive Date: 20051223
  Receipt Date: 20051031
  Transmission Date: 20060501
  Serious: No
  Sender: FDA-Public Use
  Company Number: 2005PV003661

PATIENT
  Sex: Female
  Weight: 209.5 kg

DRUGS (4)
  1. SYMLIN [Suspect]
     Indication: DIABETES MELLITUS NON-INSULIN-DEPENDENT
     Dosage: 540 MCG; X1; SC; SEE IMAGE
     Route: 058
     Dates: start: 20051030, end: 20051030
  2. SYMLIN [Suspect]
     Indication: DIABETES MELLITUS NON-INSULIN-DEPENDENT
     Dosage: 540 MCG; X1; SC; SEE IMAGE
     Route: 058
     Dates: start: 20050101
  3. LANTUS [Concomitant]
  4. HUMALOG [Concomitant]

REACTIONS (2)
  - NO ADVERSE EFFECT [None]
  - OVERDOSE [None]
